FAERS Safety Report 6792641-1 (Version None)
Quarter: 2010Q2

REPORT INFORMATION
  Report Type: 
  Country: None (occurrence: None)
  Receive Date: 20100624
  Receipt Date: 20080916
  Transmission Date: 20101027
  Serious: No
  Sender: FDA-Public Use
  Company Number: US-PFIZER INC-2008076820

PATIENT
  Sex: Male
  Weight: 91 kg

DRUGS (10)
  1. GENOTROPIN [Suspect]
     Dates: start: 20080701
  2. GENOTROPIN [Suspect]
  3. HYDROCORTISONE [Concomitant]
     Dosage: TDD: 30 TO 40 MG
  4. RANITIDINE [Concomitant]
     Indication: ABDOMINAL DISCOMFORT
  5. CITRACAL + D [Concomitant]
  6. VITAMINS [Concomitant]
  7. ACETYLSALICYLIC ACID [Concomitant]
     Dosage: 81 MG, A COUPLE
  8. SYNTHROID [Concomitant]
     Indication: THYROID DISORDER
  9. OTHER HYPNOTICS AND SEDATIVES [Concomitant]
     Indication: SLEEP DISORDER
     Dosage: ONE-HALF OF 10 MG
  10. HUMATROPE [Concomitant]

REACTIONS (1)
  - INJECTION SITE HAEMATOMA [None]
